FAERS Safety Report 8920090 (Version 1)
Quarter: 2012Q4

REPORT INFORMATION
  Report Type: 
  Country: US (occurrence: US)
  Receive Date: 20121121
  Receipt Date: 20121121
  Transmission Date: 20130627
  Serious: No
  Sender: FDA-Public Use
  Company Number: US-TEVA-371133USA

PATIENT
  Age: 29 Year
  Sex: Female

DRUGS (2)
  1. QVAR [Suspect]
     Indication: ASTHMA
     Route: 055
  2. VENTOLIN [Concomitant]
     Indication: ASTHMA
     Route: 055

REACTIONS (1)
  - Urine alcohol test positive [Not Recovered/Not Resolved]
